FAERS Safety Report 24426829 (Version 1)
Quarter: 2024Q4

REPORT INFORMATION
  Report Type: Report from Study
  Country: CL (occurrence: CL)
  Receive Date: 20241011
  Receipt Date: 20241011
  Transmission Date: 20250114
  Serious: Yes (Other)
  Sender: ROCHE
  Company Number: CL-ROCHE-10000098620

PATIENT
  Age: 69 Year
  Sex: Male

DRUGS (7)
  1. AVASTIN [Suspect]
     Active Substance: BEVACIZUMAB
     Indication: Colon cancer
     Dosage: AVASTIN 300MG IV EVERY 14 DAYS FOR 6 CYCLES
     Route: 042
     Dates: start: 20240403, end: 20240529
  2. AVASTIN [Suspect]
     Active Substance: BEVACIZUMAB
     Dosage: ONGOING. FREQUENCY WAS NOT REPORTED.
     Route: 042
     Dates: start: 20241002
  3. IRINOTECAN [Concomitant]
     Active Substance: IRINOTECAN
     Indication: Colon cancer
     Dosage: DOSE WAS NOT REPORTED. INTRAVENOUS EVERY 14 DAYS FOR 6 CYCLES
     Route: 042
     Dates: start: 20240320, end: 20240529
  4. IRINOTECAN [Concomitant]
     Active Substance: IRINOTECAN
     Dosage: FREQUENCY WAS NOT REPORTED. ONGOING
     Route: 042
     Dates: start: 20241002
  5. FLUOROURACIL SODIUM [Concomitant]
     Active Substance: FLUOROURACIL SODIUM
     Indication: Colon cancer
     Dosage: IV, DOSE WAS NOT REPORTED, EVERY 14 DAYS FOR 6 CYCLCES
     Route: 042
     Dates: start: 20240320, end: 20240529
  6. FLUOROURACIL SODIUM [Concomitant]
     Active Substance: FLUOROURACIL SODIUM
     Dosage: 5 FLUORURACIL 3960 MG IV IN CONTINUOUS INFUSION FOR 48 HOURS, ADMINISTRATION EVERY 14 DAYS.
     Route: 042
     Dates: start: 20241002
  7. LEUCOVORIN [Concomitant]
     Active Substance: LEUCOVORIN\LEUCOVORIN CALCIUM
     Indication: Colon cancer
     Dosage: DOSE AND FREQUENCY WERE NOT REPORTED

REACTIONS (1)
  - Colon cancer recurrent [Not Recovered/Not Resolved]

NARRATIVE: CASE EVENT DATE: 20240805
